FAERS Safety Report 19168387 (Version 1)
Quarter: 2021Q2

REPORT INFORMATION
  Report Type: Spontaneous
  Country: CA (occurrence: CA)
  Receive Date: 20210422
  Receipt Date: 20210422
  Transmission Date: 20210717
  Serious: Yes (Life-Threatening)
  Sender: FDA-Public Use
  Company Number: CA-TEVA-2021-CA-1902012

PATIENT
  Age: 4 Year
  Sex: Female
  Weight: 16 kg

DRUGS (33)
  1. BUSULFAN. [Suspect]
     Active Substance: BUSULFAN
     Indication: ACUTE LYMPHOCYTIC LEUKAEMIA
     Route: 042
  2. AMLODIPINE [Concomitant]
     Active Substance: AMLODIPINE BESYLATE
  3. CEFTAZIDIME. [Concomitant]
     Active Substance: CEFTAZIDIME
  4. CLOTRIMAZOLE. [Concomitant]
     Active Substance: CLOTRIMAZOLE
  5. DIPHENHYDRAMINE. [Concomitant]
     Active Substance: DIPHENHYDRAMINE
  6. FLUCONAZOLE. [Concomitant]
     Active Substance: FLUCONAZOLE
  7. DEXAMETHASONE. [Concomitant]
     Active Substance: DEXAMETHASONE
     Route: 065
  8. MORPHINE SULFATE. [Concomitant]
     Active Substance: MORPHINE SULFATE
  9. BUSULFAN. [Suspect]
     Active Substance: BUSULFAN
     Route: 042
  10. ACETAMINOPHEN. [Concomitant]
     Active Substance: ACETAMINOPHEN
  11. FUROSEMIDE. [Concomitant]
     Active Substance: FUROSEMIDE
  12. BUSULFAN. [Suspect]
     Active Substance: BUSULFAN
     Route: 042
  13. FAMCICLOVIR. [Concomitant]
     Active Substance: FAMCICLOVIR
  14. LEVETIRACETAM. [Concomitant]
     Active Substance: LEVETIRACETAM
  15. NIFEDIPINE. [Concomitant]
     Active Substance: NIFEDIPINE
     Route: 065
  16. BUSULFAN. [Suspect]
     Active Substance: BUSULFAN
     Route: 042
  17. THIOTEPA. [Suspect]
     Active Substance: THIOTEPA
     Indication: ACUTE LYMPHOCYTIC LEUKAEMIA
     Route: 042
  18. CALCIUM/ERGOCALCIFEROL [Concomitant]
  19. CICLOSPORIN [Concomitant]
     Active Substance: CYCLOSPORINE
  20. FLUDARABINE [Suspect]
     Active Substance: FLUDARABINE PHOSPHATE
     Indication: ACUTE LYMPHOCYTIC LEUKAEMIA
     Route: 042
  21. METHOTREXATE. [Suspect]
     Active Substance: METHOTREXATE
     Indication: ACUTE LYMPHOCYTIC LEUKAEMIA
     Route: 042
  22. RITUXIMAB. [Suspect]
     Active Substance: RITUXIMAB
     Indication: ACUTE LYMPHOCYTIC LEUKAEMIA
     Route: 042
  23. ALTEPLASE. [Concomitant]
     Active Substance: ALTEPLASE
  24. HEPARIN CALCIUM [Concomitant]
     Active Substance: HEPARIN CALCIUM
  25. LORAZEPAM. [Concomitant]
     Active Substance: LORAZEPAM
  26. METOCLOPRAMIDE. [Concomitant]
     Active Substance: METOCLOPRAMIDE
  27. BETAMETHASONE. [Concomitant]
     Active Substance: BETAMETHASONE
  28. CHLORHEXIDINE [Concomitant]
     Active Substance: CHLORHEXIDINE
  29. DIMENHYDRINATE. [Concomitant]
     Active Substance: DIMENHYDRINATE
  30. EPINEPHRINE. [Concomitant]
     Active Substance: EPINEPHRINE
  31. ONDANSETRON [Concomitant]
     Active Substance: ONDANSETRON
  32. RITUXIMAB. [Suspect]
     Active Substance: RITUXIMAB
     Route: 042
  33. MAGNESIUM [Concomitant]
     Active Substance: MAGNESIUM

REACTIONS (3)
  - Aplastic anaemia [Unknown]
  - Bacteraemia [Unknown]
  - Epstein-Barr virus infection [Unknown]
